FAERS Safety Report 17754132 (Version 2)
Quarter: 2020Q2

REPORT INFORMATION
  Report Type: Report from Study
  Country: None (occurrence: US)
  Receive Date: 20200507
  Receipt Date: 20200511
  Transmission Date: 20200714
  Serious: Yes (Hospitalization, Other)
  Sender: FDA-Public Use
  Company Number: US-ABBVIE-20K-163-3392771-00

PATIENT
  Sex: Female

DRUGS (1)
  1. HUMIRA [Suspect]
     Active Substance: ADALIMUMAB
     Indication: COLITIS ULCERATIVE
     Dosage: HUMIRA CITRATE FREE
     Route: 058

REACTIONS (8)
  - Intervertebral disc protrusion [Unknown]
  - General physical health deterioration [Unknown]
  - Back injury [Unknown]
  - Muscular weakness [Unknown]
  - Colitis ulcerative [Unknown]
  - Stress [Unknown]
  - Asthenia [Unknown]
  - Gait disturbance [Unknown]

NARRATIVE: CASE EVENT DATE: 2011
